FAERS Safety Report 5377207-2 (Version None)
Quarter: 2007Q2

REPORT INFORMATION
  Report Type: 
  Country: None (occurrence: None)
  Receive Date: 20070629
  Receipt Date: 20070629
  Transmission Date: 20071010
  Serious: Yes (Other)
  Sender: FDA-Public Use
  Company Number: None

PATIENT
  Age: 55 Year
  Sex: Male
  Weight: 77.1115 kg

DRUGS (2)
  1. RISPERIDONE [Suspect]
     Indication: SCHIZOPHRENIA
     Dosage: 3MG DAILY PO
     Route: 048
     Dates: start: 20070610, end: 20070628
  2. RISPERIDONE [Suspect]
     Dosage: 4MG DAILY PO
     Route: 048

REACTIONS (1)
  - NEUTROPENIA [None]
